FAERS Safety Report 10619404 (Version 2)
Quarter: 2014Q4

REPORT INFORMATION
  Report Type: Report from Study
  Country: AU (occurrence: AU)
  Receive Date: 20141202
  Receipt Date: 20141230
  Transmission Date: 20150529
  Serious: Yes (Other)
  Sender: FDA-Public Use
  Company Number: PHHY2014AU155006

PATIENT
  Sex: Male

DRUGS (13)
  1. METHYLDOPA. [Concomitant]
     Active Substance: METHYLDOPA
     Dosage: MATERNAL DOSE: 250 MG, QID
     Route: 064
  2. TACROLIMUS. [Suspect]
     Active Substance: TACROLIMUS
     Indication: PRODUCT USED FOR UNKNOWN INDICATION
     Dosage: MATERNAL DOSE: 4 MG, QD
     Route: 064
  3. TACROLIMUS. [Suspect]
     Active Substance: TACROLIMUS
     Dosage: MATERNAL DOSE: 10 MG, QD
     Route: 064
  4. TACROLIMUS. [Suspect]
     Active Substance: TACROLIMUS
     Dosage: MATERNAL DOSE: 4 MG, QD
     Route: 064
  5. ASPIRIN. [Concomitant]
     Active Substance: ASPIRIN
     Dosage: MATERNAL DOSE: UNKNOWN
     Route: 064
  6. TACROLIMUS. [Suspect]
     Active Substance: TACROLIMUS
     Dosage: MATERNAL DOSE: 5 MG, QD, ON DAY 14
     Route: 064
  7. TACROLIMUS. [Suspect]
     Active Substance: TACROLIMUS
     Dosage: MATERNAL DOSE: INCREASED UP TO 15MG
     Route: 064
  8. METHYLDOPA. [Concomitant]
     Active Substance: METHYLDOPA
     Dosage: MATERNAL DOSE: 250 MG, BID
     Route: 064
  9. PREDNISOLONE. [Suspect]
     Active Substance: PREDNISOLONE
     Indication: PRODUCT USED FOR UNKNOWN INDICATION
     Dosage: MATERNAL DOSE: 10 MG, QD
     Route: 064
  10. CALCITRIOL. [Concomitant]
     Active Substance: CALCITRIOL
     Dosage: MATERNAL DOSE: THRICE WEEKLY
     Route: 064
  11. AZATHIOPRINE. [Concomitant]
     Active Substance: AZATHIOPRINE
     Dosage: MATERNAL DOSE: UNKNOWN
     Route: 064
  12. TACROLIMUS. [Suspect]
     Active Substance: TACROLIMUS
     Dosage: MATERNAL DOSE: 7 MG, QD, ON DAY 5
     Route: 064
  13. FOLIC ACID. [Concomitant]
     Active Substance: FOLIC ACID
     Dosage: MATERNAL DOSE: UNKNOWN
     Route: 064

REACTIONS (2)
  - Premature baby [Unknown]
  - Foetal exposure during pregnancy [Unknown]
